FAERS Safety Report 15708103 (Version 2)
Quarter: 2019Q1

REPORT INFORMATION
  Report Type: Spontaneous
  Country: US (occurrence: US)
  Receive Date: 20181211
  Receipt Date: 20190115
  Transmission Date: 20190417
  Serious: Yes (Other)
  Sender: FDA-Public Use
  Company Number: US-ASTRAZENECA-2018SF58400

PATIENT
  Age: 25280 Day
  Sex: Female
  Weight: 83.9 kg

DRUGS (4)
  1. HYDROCORTISONE. [Concomitant]
     Active Substance: HYDROCORTISONE
  2. DALIRESP [Suspect]
     Active Substance: ROFLUMILAST
     Indication: BRONCHITIS CHRONIC
     Route: 048
     Dates: start: 20181123, end: 20181126
  3. PREDNISONE. [Concomitant]
     Active Substance: PREDNISONE
     Indication: SWELLING
  4. DALIRESP [Suspect]
     Active Substance: ROFLUMILAST
     Indication: CHRONIC OBSTRUCTIVE PULMONARY DISEASE
     Route: 048
     Dates: start: 20181123, end: 20181126

REACTIONS (17)
  - Pain [Recovering/Resolving]
  - Blister [Recovering/Resolving]
  - Swelling [Recovering/Resolving]
  - Skin wrinkling [Unknown]
  - Fatigue [Unknown]
  - Feeling hot [Recovering/Resolving]
  - Mass [Recovering/Resolving]
  - Skin disorder [Unknown]
  - Urticaria [Recovering/Resolving]
  - Lip swelling [Recovering/Resolving]
  - Skin exfoliation [Unknown]
  - Swelling face [Recovered/Resolved]
  - Skin burning sensation [Recovering/Resolving]
  - Sensitive skin [Unknown]
  - Condition aggravated [Recovering/Resolving]
  - Skin plaque [Recovering/Resolving]
  - Erythema [Recovering/Resolving]

NARRATIVE: CASE EVENT DATE: 20181123
